FAERS Safety Report 6248381-0 (Version None)
Quarter: 2009Q2

REPORT INFORMATION
  Report Type: 
  Country: None (occurrence: None)
  Receive Date: 20090629
  Receipt Date: 20090624
  Transmission Date: 20091009
  Serious: Yes (Life-Threatening, Hospitalization)
  Sender: FDA-Public Use
  Company Number: PHHY2009US25372

PATIENT
  Sex: Female
  Weight: 74 kg

DRUGS (5)
  1. ERL 080A ERL+TAB [Suspect]
     Indication: RENAL TRANSPLANT
     Dosage: 720 MG, BID
     Route: 048
     Dates: start: 20080319
  2. ERL 080A ERL+TAB [Suspect]
     Indication: IMMUNOSUPPRESSION
  3. TACROLIMUS [Concomitant]
     Indication: RENAL TRANSPLANT
     Dosage: 2 MG, BID
     Dates: start: 20080319
  4. TACROLIMUS [Concomitant]
     Indication: IMMUNOSUPPRESSION
  5. CONTRAST MEDIA [Concomitant]
     Indication: DIAGNOSTIC PROCEDURE
     Route: 042

REACTIONS (4)
  - DEHYDRATION [None]
  - PANCREAS TRANSPLANT [None]
  - PYREXIA [None]
  - RENAL FAILURE ACUTE [None]
